FAERS Safety Report 5335885-8 (Version None)
Quarter: 2007Q1

REPORT INFORMATION
  Report Type: 
  Country: None (occurrence: None)
  Receive Date: 20070301
  Receipt Date: 20060720
  Transmission Date: 20070707
  Serious: Yes (Hospitalization)
  Sender: FDA-Public Use
  Company Number: 225756

PATIENT
  Age: 14 Year
  Sex: Male

DRUGS (1)
  1. NUTROPIN AQ [Suspect]
     Indication: BLOOD GROWTH HORMONE DECREASED
     Dosage: 2.5 MG
     Dates: start: 20060428

REACTIONS (2)
  - HYPERTENSION [None]
  - PAPILLOEDEMA [None]
